FAERS Safety Report 5832807-8 (Version None)
Quarter: 2008Q3

REPORT INFORMATION
  Report Type: 
  Country: None (occurrence: None)
  Receive Date: 20080804
  Receipt Date: 20080724
  Transmission Date: 20090109
  Serious: Yes (Hospitalization, Other)
  Sender: FDA-Public Use
  Company Number: AR-PFIZER INC-2008058256

PATIENT
  Age: 60 Year
  Sex: Female

DRUGS (2)
  1. ZOLOFT [Suspect]
     Route: 048
     Dates: start: 20080701, end: 20080701
  2. OXALIPLATIN [Concomitant]

REACTIONS (5)
  - CARDIAC DISORDER [None]
  - EXTRASYSTOLES [None]
  - HYPERSENSITIVITY [None]
  - LARYNGEAL OEDEMA [None]
  - TACHYCARDIA [None]
